FAERS Safety Report 11585479 (Version 2)
Quarter: 2016Q1

REPORT INFORMATION
  Report Type: Spontaneous
  Country: AU (occurrence: AU)
  Receive Date: 20151001
  Receipt Date: 20160121
  Transmission Date: 20160525
  Serious: Yes (Other)
  Sender: FDA-Public Use
  Company Number: AU-009507513-1509AUS013254

PATIENT
  Age: 72 Year
  Sex: Male

DRUGS (1)
  1. FOSAMAX PLUS D-CAL [Suspect]
     Active Substance: ALENDRONATE SODIUM\CALCIUM CARBONATE\CHOLECALCIFEROL
     Indication: OSTEOPOROSIS
     Dosage: UNK
     Route: 048
     Dates: start: 2012

REACTIONS (7)
  - Heart valve replacement [Unknown]
  - Pain in extremity [Not Recovered/Not Resolved]
  - Arthralgia [Not Recovered/Not Resolved]
  - Myalgia [Not Recovered/Not Resolved]
  - Vascular calcification [Not Recovered/Not Resolved]
  - Scoliosis [Not Recovered/Not Resolved]
  - Coronary artery bypass [Unknown]

NARRATIVE: CASE EVENT DATE: 2013
